FAERS Safety Report 5087463-6 (Version None)
Quarter: 2006Q3

REPORT INFORMATION
  Report Type: 
  Country: None (occurrence: None)
  Receive Date: 20060823
  Receipt Date: 20060823
  Transmission Date: 20061208
  Serious: No
  Sender: FDA-Public Use
  Company Number: None

PATIENT
  Age: 26 Year
  Sex: Male
  Weight: 72.5755 kg

DRUGS (1)
  1. PROHEALTH RINSE  CREST [Suspect]
     Indication: DENTAL CARE
     Dosage: 1/CAPFUL 1/DAY DENTAL
     Route: 004
     Dates: start: 20060822, end: 20060822

REACTIONS (1)
  - TOOTH DISCOLOURATION [None]
